FAERS Safety Report 5067826-5 (Version None)
Quarter: 2006Q3

REPORT INFORMATION
  Report Type: 
  Country: None (occurrence: None)
  Receive Date: 20060731
  Receipt Date: 20060725
  Transmission Date: 20061208
  Serious: Yes (Hospitalization)
  Sender: FDA-Public Use
  Company Number: 146590USA

PATIENT
  Age: 37 Year
  Sex: Female

DRUGS (1)
  1. PHENYLEPHRINE [Suspect]
     Dates: start: 20060518, end: 20060518

REACTIONS (4)
  - BLOOD PRESSURE DECREASED [None]
  - COMA [None]
  - DRUG EXPOSURE DURING PREGNANCY [None]
  - DRUG INEFFECTIVE [None]
